FAERS Safety Report 4448869-9 (Version None)
Quarter: 2004Q3

REPORT INFORMATION
  Report Type: 
  Country: None (occurrence: None)
  Receive Date: 20040909
  Receipt Date: 20040824
  Transmission Date: 20050211
  Serious: Yes (Other)
  Sender: FDA-Public Use
  Company Number: USA040876304

PATIENT
  Age: 51 Year
  Sex: Male
  Weight: 118 kg

DRUGS (2)
  1. HUMULIN N [Suspect]
     Dosage: 50 U DAY
     Dates: start: 20020101
  2. HUMULIN R [Suspect]
     Dosage: 15 U DAY
     Dates: start: 20020101

REACTIONS (5)
  - ALTERED VISUAL DEPTH PERCEPTION [None]
  - EYE OEDEMA [None]
  - INTRAOCULAR PRESSURE INCREASED [None]
  - VISUAL DISTURBANCE [None]
  - WEIGHT INCREASED [None]
